FAERS Safety Report 24443771 (Version 2)
Quarter: 2024Q4

REPORT INFORMATION
  Report Type: Report from Study
  Country: US (occurrence: US)
  Receive Date: 20241016
  Receipt Date: 20241017
  Transmission Date: 20250115
  Serious: No
  Sender: ROCHE
  Company Number: US-ROCHE-2079105

PATIENT
  Age: 28 Year
  Sex: Female

DRUGS (6)
  1. RITUXAN [Suspect]
     Active Substance: RITUXIMAB
     Indication: Neuromyelitis optica spectrum disorder
     Dosage: DATE OF SERVICE: 21/AUG/2017, 19/FEB/2018, /AUG/2018,07/AUG/2020,14/MAR/2019, 08/APR/2022, DATE OF S
     Route: 041
  2. RITUXAN [Suspect]
     Active Substance: RITUXIMAB
     Indication: Demyelination
     Dosage: 1000 MG 2 DOSES THEN EVERY 6 MONTHS
     Route: 042
  3. ERGOCALCIFEROL [Concomitant]
     Active Substance: ERGOCALCIFEROL
  4. FLUTICASONE [Concomitant]
     Active Substance: FLUTICASONE
  5. PREDNISONE [Concomitant]
     Active Substance: PREDNISONE
  6. ACETAMINOPHEN\CODEINE PHOSPHATE [Concomitant]
     Active Substance: ACETAMINOPHEN\CODEINE PHOSPHATE

REACTIONS (2)
  - Off label use [Unknown]
  - No adverse event [Unknown]
